FAERS Safety Report 19208945 (Version 1)
Quarter: 2021Q2

REPORT INFORMATION
  Report Type: Spontaneous
  Country: US (occurrence: US)
  Receive Date: 20210503
  Receipt Date: 20210503
  Transmission Date: 20210717
  Serious: Yes (Other)
  Sender: FDA-Public Use
  Company Number: US-IGSA-BIG0014230

PATIENT
  Age: 52 Year
  Sex: Male

DRUGS (22)
  1. GAMUNEX?C [Suspect]
     Active Substance: HUMAN IMMUNOGLOBULIN G
     Indication: CHRONIC INFLAMMATORY DEMYELINATING POLYRADICULONEUROPATHY
     Dosage: 900 MILLILITER
     Route: 042
     Dates: start: 20210412
  2. ACETAMINOPHEN. [Concomitant]
     Active Substance: ACETAMINOPHEN
  3. ASPIRIN (E.C.) [Concomitant]
     Active Substance: ASPIRIN
  4. BUMETANIDE. [Concomitant]
     Active Substance: BUMETANIDE
  5. CLOPIDOGREL [Concomitant]
     Active Substance: CLOPIDOGREL BISULFATE
  6. GABAPENTIN. [Concomitant]
     Active Substance: GABAPENTIN
  7. HEPARIN [Concomitant]
     Active Substance: HEPARIN SODIUM
  8. SENNA ACUTIFOLIA [Concomitant]
  9. SOLU?MEDROL [Concomitant]
     Active Substance: METHYLPREDNISOLONE SODIUM SUCCINATE
  10. EPINEPHRINE. [Concomitant]
     Active Substance: EPINEPHRINE
  11. PANTOPRAZOLE SODIUM. [Concomitant]
     Active Substance: PANTOPRAZOLE SODIUM
  12. AZATHIOPRINE. [Concomitant]
     Active Substance: AZATHIOPRINE
  13. LIOTHYRONINE SODIUM. [Concomitant]
     Active Substance: LIOTHYRONINE SODIUM
  14. IVIGLOB EX [Concomitant]
     Active Substance: HUMAN IMMUNOGLOBULIN G
     Dosage: UNK UNK, PRN
  15. TRAMADOL HCL [Concomitant]
     Active Substance: TRAMADOL HYDROCHLORIDE
  16. BANOPHEN [Concomitant]
     Active Substance: DIPHENHYDRAMINE HYDROCHLORIDE
  17. MIDODRINE HCL [Concomitant]
     Active Substance: MIDODRINE HYDROCHLORIDE
  18. NORMAL SALINE [Concomitant]
     Active Substance: SODIUM CHLORIDE
  19. BENADRYL 24 D [Concomitant]
     Active Substance: LORATADINE\PSEUDOEPHEDRINE SULFATE
     Indication: PREMEDICATION
  20. CARVEDILOL. [Concomitant]
     Active Substance: CARVEDILOL
  21. LEVOTHYROXINE SODIUM. [Concomitant]
     Active Substance: LEVOTHYROXINE SODIUM
  22. PREDNISONE. [Concomitant]
     Active Substance: PREDNISONE

REACTIONS (3)
  - Swelling face [Unknown]
  - Pruritus [Unknown]
  - Cough [Unknown]

NARRATIVE: CASE EVENT DATE: 20210412
